FAERS Safety Report 14713519 (Version 1)
Quarter: 2018Q2

REPORT INFORMATION
  Report Type: Spontaneous
  Country: IN (occurrence: IN)
  Receive Date: 20180404
  Receipt Date: 20180404
  Transmission Date: 20180711
  Serious: Yes (Hospitalization)
  Sender: FDA-Public Use
  Company Number: IN-MYLANLABS-2018M1021376

PATIENT
  Age: 19 Year
  Sex: Male

DRUGS (2)
  1. DAPSONE. [Suspect]
     Active Substance: DAPSONE
     Indication: BORDERLINE LEPROSY
     Dosage: AS A PART OF THE MULTI-DRUG THERAPY
     Route: 065
  2. RIFAMPICIN [Suspect]
     Active Substance: RIFAMPIN
     Indication: BORDERLINE LEPROSY
     Dosage: AS A PART OF THE MULTI-DRUG THERAPY
     Route: 065

REACTIONS (1)
  - Nephritis [Recovered/Resolved]
